FAERS Safety Report 10393283 (Version 1)
Quarter: 2014Q3

REPORT INFORMATION
  Report Type: Spontaneous
  Country: BR (occurrence: BR)
  Receive Date: 20140819
  Receipt Date: 20140819
  Transmission Date: 20150326
  Serious: Yes (Other)
  Sender: FDA-Public Use
  Company Number: BR-PFIZER INC-2014224179

PATIENT
  Age: 86 Year
  Sex: Female
  Weight: 45 kg

DRUGS (1)
  1. XALATAN [Suspect]
     Active Substance: LATANOPROST
     Indication: GLAUCOMA
     Dosage: 3 UG (2 DROPS) ONCE A DAY
     Route: 047
     Dates: start: 20110729

REACTIONS (3)
  - Fall [Unknown]
  - Joint injury [Unknown]
  - Abasia [Unknown]

NARRATIVE: CASE EVENT DATE: 2014
